FAERS Safety Report 18699842 (Version 1)
Quarter: 2021Q1

REPORT INFORMATION
  Report Type: Spontaneous
  Country: DZ (occurrence: DZ)
  Receive Date: 20210105
  Receipt Date: 20210105
  Transmission Date: 20210419
  Serious: Yes (Hospitalization, Other)
  Sender: FDA-Public Use
  Company Number: DZ-BIOVITRUM-2020DZ7621

PATIENT
  Sex: Female
  Weight: 15 kg

DRUGS (1)
  1. NITISINONE [Suspect]
     Active Substance: NITISINONE
     Indication: TYROSINAEMIA
     Dosage: 5MG/10MG TABLETS
     Route: 048

REACTIONS (6)
  - Knee deformity [Unknown]
  - Multiple epiphyseal dysplasia [Unknown]
  - Hepatocellular carcinoma [Unknown]
  - Hepatomegaly [Unknown]
  - Splenomegaly [Unknown]
  - Abdominal distension [Unknown]
